FAERS Safety Report 10431487 (Version 1)
Quarter: 2014Q3

REPORT INFORMATION
  Report Type: Report from Study
  Country: US (occurrence: US)
  Receive Date: 20140904
  Receipt Date: 20140904
  Transmission Date: 20150326
  Serious: Yes (Hospitalization)
  Sender: FDA-Public Use
  Company Number: US-TAKEDA-2014MPI002329

PATIENT
  Age: 66 Year
  Sex: Male
  Weight: 87.4 kg

DRUGS (4)
  1. VELCADE [Suspect]
     Active Substance: BORTEZOMIB
     Indication: PLASMA CELL MYELOMA
     Dosage: UNK
     Route: 042
     Dates: start: 20100917
  2. DEXAMETHASONE. [Suspect]
     Active Substance: DEXAMETHASONE
     Indication: PLASMA CELL MYELOMA
     Dosage: 40 MG, ON DAYS 1, 8, 15 AND 22
     Route: 048
     Dates: start: 20100917
  3. ASPIRIN. [Suspect]
     Active Substance: ASPIRIN
     Indication: PLASMA CELL MYELOMA
     Dosage: 325 MG, QD
     Route: 048
     Dates: start: 20100917
  4. LENALIDOMIDE [Suspect]
     Active Substance: LENALIDOMIDE
     Indication: PLASMA CELL MYELOMA
     Dosage: 25 MG, QD, ON DAYS 1-21
     Route: 048
     Dates: start: 20100917, end: 20140728

REACTIONS (1)
  - Enterovesical fistula [Recovered/Resolved]

NARRATIVE: CASE EVENT DATE: 20140819
